FAERS Safety Report 4707072-5 (Version None)
Quarter: 2005Q2

REPORT INFORMATION
  Report Type: 
  Country: None (occurrence: None)
  Receive Date: 20050113
  Receipt Date: 20050113
  Transmission Date: 20051028
  Serious: Yes (Other)
  Sender: FDA-Public Use
  Company Number: None

PATIENT

DRUGS (2)
  1. TEGRETOL [Suspect]
     Indication: EPILEPSY
     Dosage: 3 BID PO
     Route: 048
     Dates: start: 19840710
  2. TEGRETOL [Suspect]
     Indication: PARTIAL SEIZURES
     Dosage: 3 BID PO
     Route: 048
     Dates: start: 19840710

REACTIONS (2)
  - CONVULSION [None]
  - THERAPEUTIC RESPONSE UNEXPECTED WITH DRUG SUBSTITUTION [None]
